FAERS Safety Report 12444714 (Version 1)
Quarter: 2016Q2

REPORT INFORMATION
  Report Type: Spontaneous
  Country: US (occurrence: US)
  Receive Date: 20160607
  Receipt Date: 20160607
  Transmission Date: 20160815
  Serious: Yes (Hospitalization, Other)
  Sender: FDA-Public Use
  Company Number: US-MDT-ADR-2016-00328

PATIENT
  Sex: Male
  Weight: 43 kg

DRUGS (2)
  1. LIORESAL [Suspect]
     Active Substance: BACLOFEN
     Dosage: 225.0 MCG/DAY
  2. LIORESAL [Suspect]
     Active Substance: BACLOFEN

REACTIONS (4)
  - Hypotonia [Recovering/Resolving]
  - Bradycardia [Recovering/Resolving]
  - Overdose [Recovering/Resolving]
  - Hypothermia [Recovering/Resolving]
